FAERS Safety Report 6520232-6 (Version None)
Quarter: 2009Q4

REPORT INFORMATION
  Report Type: 
  Country: None (occurrence: None)
  Receive Date: 20091229
  Receipt Date: 20091223
  Transmission Date: 20100525
  Serious: Yes (Life-Threatening, Hospitalization, Disabling, Other)
  Sender: FDA-Public Use
  Company Number: PHHY2008GB25364

PATIENT
  Sex: Male
  Weight: 77.5 kg

DRUGS (2)
  1. EXJADE [Suspect]
     Indication: THALASSAEMIA BETA
     Dosage: 2.25MG DAILY
     Route: 048
     Dates: start: 20061201
  2. SUSTANON [Concomitant]
     Indication: HYPOGONADISM
     Dosage: UNK

REACTIONS (14)
  - ACUTE DISSEMINATED ENCEPHALOMYELITIS [None]
  - BRAIN OEDEMA [None]
  - CEREBROVASCULAR ACCIDENT [None]
  - CRANIOTOMY [None]
  - DEMYELINATION [None]
  - FALL [None]
  - FLUSHING [None]
  - INTRACRANIAL PRESSURE INCREASED [None]
  - LEUKOENCEPHALOPATHY [None]
  - MUSCULAR WEAKNESS [None]
  - NERVOUS SYSTEM DISORDER [None]
  - NEUROSURGERY [None]
  - VIRAL INFECTION [None]
  - WHEELCHAIR USER [None]
